FAERS Safety Report 17130789 (Version 2)
Quarter: 2019Q4

REPORT INFORMATION
  Report Type: Spontaneous
  Country: IT (occurrence: IT)
  Receive Date: 20191209
  Receipt Date: 20191220
  Transmission Date: 20200122
  Serious: Yes (Life-Threatening)
  Sender: FDA-Public Use
  Company Number: IT-AMERICAN REGENT INC-2019002721

PATIENT
  Age: 83 Year
  Sex: Male
  Weight: 95 kg

DRUGS (2)
  1. FERINJECT [Suspect]
     Active Substance: FERRIC CARBOXYMALTOSE
     Indication: PRODUCT USED FOR UNKNOWN INDICATION
     Dosage: 1000 MILLIGRAM, 1 IN 1 WK
     Route: 042
     Dates: start: 20191105
  2. FERINJECT [Suspect]
     Active Substance: FERRIC CARBOXYMALTOSE
     Dosage: 1000 MILLIGRAM, 1 IN 1 WK
     Route: 042
     Dates: start: 20191112

REACTIONS (4)
  - Respiratory arrest [Recovered/Resolved]
  - Pulseless electrical activity [Recovered/Resolved]
  - Oxygen saturation decreased [Not Recovered/Not Resolved]
  - Dyspnoea [Not Recovered/Not Resolved]

NARRATIVE: CASE EVENT DATE: 20191112
